FAERS Safety Report 9041557 (Version 1)
Quarter: 2013Q1

REPORT INFORMATION
  Report Type: Report from Study
  Country: US (occurrence: US)
  Receive Date: 20130129
  Receipt Date: 20130129
  Transmission Date: 20140127
  Serious: No
  Sender: FDA-Public Use
  Company Number: US-ABBOTT-12P-163-0889692-00

PATIENT
  Age: 66 Year
  Sex: Male

DRUGS (10)
  1. HUMIRA 40 MG/0.8 ML PEN [Suspect]
     Indication: PSORIASIS
     Dosage: 80 MG X 1 DOSE
     Dates: start: 20111213
  2. HUMIRA 40 MG/0.8 ML PEN [Suspect]
     Dosage: 40 MG EVERY OTHER WEEK X 1 DOSE
     Dates: end: 20111220
  3. HUMIRA 40 MG/0.8 ML PEN [Suspect]
     Dates: start: 20120206
  4. CARDIZEM [Concomitant]
     Indication: PRODUCT USED FOR UNKNOWN INDICATION
  5. METOPROLOL [Concomitant]
     Indication: PRODUCT USED FOR UNKNOWN INDICATION
     Dosage: 100 MG BID
  6. METFORMIN [Concomitant]
     Indication: PRODUCT USED FOR UNKNOWN INDICATION
  7. PRADAXA [Concomitant]
     Indication: PRODUCT USED FOR UNKNOWN INDICATION
  8. LASIX [Concomitant]
     Indication: PRODUCT USED FOR UNKNOWN INDICATION
  9. SPIRONOLACTONE [Concomitant]
     Indication: PRODUCT USED FOR UNKNOWN INDICATION
  10. ALLOPURINOL [Concomitant]
     Indication: PRODUCT USED FOR UNKNOWN INDICATION
     Dosage: 100 MG DAILY

REACTIONS (3)
  - Pneumonia [Recovering/Resolving]
  - Abnormal dreams [Not Recovered/Not Resolved]
  - Restless legs syndrome [Not Recovered/Not Resolved]
